FAERS Safety Report 8941073 (Version 5)
Quarter: 2013Q4

REPORT INFORMATION
  Report Type: Report from Study
  Country: RU (occurrence: RU)
  Receive Date: 20121203
  Receipt Date: 20131209
  Transmission Date: 20140711
  Serious: Yes (Life-Threatening, Hospitalization)
  Sender: FDA-Public Use
  Company Number: RU-009507513-1211RUS012774

PATIENT
  Age: 52 Year
  Sex: Female
  Weight: 58.2 kg

DRUGS (5)
  1. BLINDED BOCEPREVIR [Suspect]
     Indication: CHRONIC HEPATITIS C
     Dosage: UNK
     Route: 048
     Dates: start: 20120614, end: 20121122
  2. PEGINTRON [Suspect]
     Indication: CHRONIC HEPATITIS C
     Dosage: 120 MICROGRAM, QW
     Route: 058
     Dates: start: 20120517, end: 20120711
  3. PEGINTRON [Suspect]
     Dosage: 80 MICROGRAM, QW
     Route: 058
     Dates: start: 20120712, end: 20121122
  4. REBETOL [Suspect]
     Indication: CHRONIC HEPATITIS C
     Dosage: 800 MG, QD
     Route: 048
     Dates: start: 20120517, end: 20120615
  5. REBETOL [Suspect]
     Dosage: 400 MG, QD
     Route: 048
     Dates: start: 20120716, end: 20121122

REACTIONS (1)
  - Diabetic ketoacidosis [Recovered/Resolved with Sequelae]
